FAERS Safety Report 6469788-2 (Version None)
Quarter: 2009Q4

REPORT INFORMATION
  Report Type: 
  Country: None (occurrence: None)
  Receive Date: 20091203
  Receipt Date: 20080226
  Transmission Date: 20100525
  Serious: Yes (Other)
  Sender: FDA-Public Use
  Company Number: US-ELI_LILLY_AND_COMPANY-US200711002064

PATIENT
  Age: 54 Year
  Sex: Female
  Weight: 89.796 kg

DRUGS (5)
  1. BYETTA [Suspect]
     Indication: TYPE 2 DIABETES MELLITUS
     Dosage: 5 UG, 2/D
     Route: 058
     Dates: start: 20060927, end: 20061030
  2. BYETTA [Suspect]
     Dosage: 10 UG, 2/D
     Route: 058
     Dates: start: 20061030, end: 20071102
  3. GLUCOPHAGE [Concomitant]
     Dosage: UNK, UNKNOWN
  4. STARLIX [Concomitant]
     Dosage: UNK, UNKNOWN
  5. ACTOS [Concomitant]
     Dosage: UNK, UNKNOWN

REACTIONS (3)
  - BLOOD GLUCOSE INCREASED [None]
  - PANCREATITIS [None]
  - WEIGHT DECREASED [None]
